FAERS Safety Report 8784737 (Version 1)
Quarter: 2012Q4

REPORT INFORMATION
  Report Type: 
  Country: US (occurrence: US)
  Receive Date: 20120914
  Receipt Date: 20120914
  Transmission Date: 20130627
  Serious: Yes (Other)
  Sender: FDA-Public Use
  Company Number: US-COVIDIEN/TYCO HEALTHCARE/MALLINCKRODT-T201203353

PATIENT
  Age: 79 Year
  Sex: Female

DRUGS (1)
  1. SODIUM IODIDE (I-131) CAPSULES [Suspect]
     Indication: RADIOACTIVE IODINE THERAPY
     Dosage: 5.5 GBq, single
     Route: 048

REACTIONS (1)
  - Oesophageal stenosis [Unknown]
